FAERS Safety Report 8859395 (Version 1)
Quarter: 2012Q4

REPORT INFORMATION
  Report Type: Spontaneous
  Country: DE (occurrence: None)
  Receive Date: 20121022
  Receipt Date: 20121022
  Transmission Date: 20130627
  Serious: Yes (Other)
  Sender: FDA-Public Use
  Company Number: 7166764

PATIENT
  Age: 57 Year
  Sex: Female

DRUGS (1)
  1. EUTHYROX [Suspect]
     Indication: HYPOTHYROIDISM
     Route: 048

REACTIONS (6)
  - Intracranial pressure increased [None]
  - Anxiety disorder [None]
  - Palpitations [None]
  - Diarrhoea [None]
  - Hyperhidrosis [None]
  - Eye swelling [None]
